FAERS Safety Report 7267251-2 (Version None)
Quarter: 2011Q1

REPORT INFORMATION
  Report Type: 
  Country: None (occurrence: None)
  Receive Date: 20110201
  Receipt Date: 20110111
  Transmission Date: 20110831
  Serious: No
  Sender: FDA-Public Use
  Company Number: A0904979A

PATIENT
  Age: 34 Year
  Sex: Female

DRUGS (2)
  1. VELTIN [Suspect]
     Dosage: 1APP AT NIGHT
     Route: 061
     Dates: start: 20110107, end: 20110107
  2. HYDROQUINONE CREAM [Concomitant]

REACTIONS (4)
  - DRY SKIN [None]
  - SKIN EXFOLIATION [None]
  - SKIN IRRITATION [None]
  - SKIN DISCOLOURATION [None]
